FAERS Safety Report 9009559 (Version 1)
Quarter: 2013Q1

REPORT INFORMATION
  Report Type: Spontaneous
  Country: US (occurrence: US)
  Receive Date: 20130111
  Receipt Date: 20130111
  Transmission Date: 20140127
  Serious: Yes (Hospitalization, Other)
  Sender: FDA-Public Use
  Company Number: US-BAXTER-2012BAX023720

PATIENT
  Age: 68 Year
  Sex: Male

DRUGS (3)
  1. DIANEAL LOW CALCIUM [Suspect]
     Indication: PERITONEAL DIALYSIS
     Route: 033
  2. DIANEAL LOW CALCIUM [Suspect]
     Indication: PERITONEAL DIALYSIS
     Route: 033
  3. HEPARIN [Suspect]
     Indication: MYOCARDIAL INFARCTION
     Route: 042

REACTIONS (5)
  - Myocardial infarction [Recovering/Resolving]
  - Catheter site haematoma [Recovering/Resolving]
  - Haemorrhage [Recovering/Resolving]
  - Dehydration [Recovered/Resolved]
  - Diarrhoea [Unknown]
